FAERS Safety Report 10843653 (Version 2)
Quarter: 2015Q3

REPORT INFORMATION
  Report Type: Spontaneous
  Country: US (occurrence: US)
  Receive Date: 20150220
  Receipt Date: 20150712
  Transmission Date: 20151125
  Serious: Yes (Hospitalization)
  Sender: FDA-Public Use
  Company Number: US-JNJFOC-20150211604

PATIENT
  Age: 76 Year
  Sex: Male
  Weight: 85.73 kg

DRUGS (6)
  1. DIGITOXIN [Concomitant]
     Active Substance: DIGITOXIN
     Route: 065
  2. XARELTO [Suspect]
     Active Substance: RIVAROXABAN
     Indication: ATRIAL FIBRILLATION
     Dosage: P.O Q.D, 30 DAYS, 4 REFILLS
     Route: 048
     Dates: start: 20140110, end: 20140904
  3. XARELTO [Suspect]
     Active Substance: RIVAROXABAN
     Indication: CEREBROVASCULAR ACCIDENT PROPHYLAXIS
     Dosage: P.O Q.D, 30 DAYS, 4 REFILLS
     Route: 048
     Dates: start: 20140110, end: 20140904
  4. AMIODARONE [Concomitant]
     Active Substance: AMIODARONE
     Dosage: P.O Q.D, 30 DAYS, 5 REFILLS
     Route: 048
     Dates: start: 20140416, end: 20141012
  5. XARELTO [Suspect]
     Active Substance: RIVAROXABAN
     Indication: ATRIAL FIBRILLATION
     Dosage: P.O Q.D, 30 DAYS, 4 REFILLS
     Route: 048
     Dates: start: 20140110, end: 20140904
  6. ATENOLOL. [Concomitant]
     Active Substance: ATENOLOL
     Indication: HYPERTENSION
     Dosage: P.O B.I.D, 30 DAYS, 5 REFILLS
     Route: 048
     Dates: start: 20140416, end: 20141012

REACTIONS (7)
  - Gastrointestinal haemorrhage [Unknown]
  - Angiopathy [Unknown]
  - Rectal haemorrhage [Unknown]
  - Haemorrhagic anaemia [Recovering/Resolving]
  - Large intestine polyp [Unknown]
  - Acute kidney injury [Recovered/Resolved]
  - Pneumonia [Unknown]

NARRATIVE: CASE EVENT DATE: 201403
